FAERS Safety Report 6148930-7 (Version None)
Quarter: 2009Q2

REPORT INFORMATION
  Report Type: 
  Country: None (occurrence: None)
  Receive Date: 20090406
  Receipt Date: 20090324
  Transmission Date: 20091009
  Serious: Yes (Hospitalization, Other)
  Sender: FDA-Public Use
  Company Number: GXKR2009TR03829

PATIENT
  Age: 20 Year
  Sex: Female
  Weight: 77 kg

DRUGS (2)
  1. METFORMIN (NGX) (METFORMIN) [Suspect]
     Indication: GLUCOSE TOLERANCE IMPAIRED
     Dosage: CUMULATIVE DOSE 76.5 G,
  2. METFORMIN (NGX) (METFORMIN) [Suspect]
     Indication: OBESITY
     Dosage: CUMULATIVE DOSE 76.5 G,

REACTIONS (12)
  - ABDOMINAL PAIN UPPER [None]
  - COAGULATION FACTOR VII LEVEL DECREASED [None]
  - HAEMODIALYSIS [None]
  - HEPATIC FUNCTION ABNORMAL [None]
  - INTENTIONAL OVERDOSE [None]
  - LEUKOCYTOSIS [None]
  - METABOLIC ACIDOSIS [None]
  - NAUSEA [None]
  - PROTEIN S DECREASED [None]
  - RENAL IMPAIRMENT [None]
  - SUICIDE ATTEMPT [None]
  - VOMITING [None]
